FAERS Safety Report 5032289-2 (Version None)
Quarter: 2006Q2

REPORT INFORMATION
  Report Type: 
  Country: None (occurrence: None)
  Receive Date: 20060508
  Receipt Date: 20051010
  Transmission Date: 20061013
  Serious: Yes (Hospitalization)
  Sender: FDA-Public Use
  Company Number: USA0510110590

PATIENT
  Sex: Male

DRUGS (1)
  1. PROZAC [Suspect]
     Route: 065

REACTIONS (1)
  - SUICIDE ATTEMPT [None]
